FAERS Safety Report 22710917 (Version 3)
Quarter: 2023Q4

REPORT INFORMATION
  Report Type: Spontaneous
  Country: JP (occurrence: JP)
  Receive Date: 20230717
  Receipt Date: 20231110
  Transmission Date: 20240109
  Serious: Yes (Hospitalization, Other)
  Sender: FDA-Public Use
  Company Number: JP-BAYER-2023A089196

PATIENT
  Sex: Male

DRUGS (10)
  1. EYLEA [Suspect]
     Active Substance: AFLIBERCEPT
     Indication: Diabetic retinal oedema
     Dosage: DAILY DOSE 2 MG, LEFT EYE, SOLUTION FOR INJECTION IN PRE-FILLED SYRINGE, 40 MG/ML
     Route: 031
     Dates: start: 20220128, end: 20220128
  2. EYLEA [Suspect]
     Active Substance: AFLIBERCEPT
     Dosage: DAILY DOSE 2 MG, RIGHT EYE, SOLUTION FOR INJECTION IN PRE-FILLED SYRINGE, 40 MG/ML
     Route: 031
     Dates: start: 20220225, end: 20220225
  3. EYLEA [Suspect]
     Active Substance: AFLIBERCEPT
     Dosage: DAILY DOSE 2 MG, LEFT EYE, SOLUTION FOR INJECTION IN PRE-FILLED SYRINGE, 40 MG/ML
     Route: 031
     Dates: start: 20220311, end: 20220311
  4. EYLEA [Suspect]
     Active Substance: AFLIBERCEPT
     Dosage: DAILY DOSE 2 MG, RIGHT EYE, SOLUTION FOR INJECTION IN PRE-FILLED SYRINGE, 40 MG/ML
     Route: 031
     Dates: start: 20220509, end: 20220509
  5. EYLEA [Suspect]
     Active Substance: AFLIBERCEPT
     Dosage: DAILY DOSE 2 MG, LEFT EYE, SOLUTION FOR INJECTION IN PRE-FILLED SYRINGE, 40 MG/ML
     Route: 031
     Dates: start: 20220623, end: 20220623
  6. EYLEA [Suspect]
     Active Substance: AFLIBERCEPT
     Dosage: DAILY DOSE 2 MG, LEFT EYE, SOLUTION FOR INJECTION IN PRE-FILLED SYRINGE, 40 MG/ML
     Route: 031
     Dates: start: 20220912, end: 20220912
  7. EYLEA [Suspect]
     Active Substance: AFLIBERCEPT
     Dosage: DAILY DOSE 2 MG, RIGHT EYE, SOLUTION FOR INJECTION IN PRE-FILLED SYRINGE, 40 MG/ML
     Route: 031
     Dates: start: 20221109, end: 20221109
  8. VABYSMO [Suspect]
     Active Substance: FARICIMAB\FARICIMAB-SVOA
     Indication: Diabetic retinal oedema
     Dosage: DAILY DOSE 6 MG, RIGHT EYE
     Route: 031
     Dates: start: 20230124, end: 20230124
  9. VABYSMO [Suspect]
     Active Substance: FARICIMAB\FARICIMAB-SVOA
     Dosage: DAILY DOSE 6 MG, LEFT EYE
     Route: 031
     Dates: start: 20230322, end: 20230322
  10. VABYSMO [Suspect]
     Active Substance: FARICIMAB\FARICIMAB-SVOA
     Dosage: DAILY DOSE 6 MG, RIGHT EYE
     Route: 031
     Dates: start: 20230530, end: 20230530

REACTIONS (10)
  - Cardiac failure [Recovering/Resolving]
  - Brain natriuretic peptide increased [Unknown]
  - Blood creatine phosphokinase increased [Unknown]
  - Acute myocardial infarction [Recovering/Resolving]
  - Therapeutic product effect incomplete [Unknown]
  - Electrocardiogram ST segment abnormal [Unknown]
  - Oedema [Unknown]
  - Inferior vena cava dilatation [Unknown]
  - Diabetic retinal oedema [Unknown]
  - Nausea [Unknown]

NARRATIVE: CASE EVENT DATE: 20230124
